FAERS Safety Report 5420631-X (Version None)
Quarter: 2007Q3

REPORT INFORMATION
  Report Type: 
  Country: None (occurrence: None)
  Receive Date: 20070821
  Receipt Date: 20070814
  Transmission Date: 20080115
  Serious: Yes (Hospitalization, Other)
  Sender: FDA-Public Use
  Company Number: US-BAYER-200410363BCC

PATIENT
  Age: 61 Year
  Sex: Female
  Weight: 93 kg

DRUGS (11)
  1. ALEVE [Suspect]
     Indication: BACK PAIN
     Dosage: TOTAL DAILY DOSE: 1320 MG  UNIT DOSE: 220 MG
     Route: 048
     Dates: start: 20031001, end: 20031001
  2. ALEVE [Suspect]
     Dosage: TOTAL DAILY DOSE: 440 MG  UNIT DOSE: 220 MG
     Route: 048
  3. TYLENOL W/ CODEINE [Suspect]
     Indication: PAIN
  4. ZESTRIL [Concomitant]
     Route: 048
  5. CARDIZEM [Concomitant]
     Route: 048
  6. MICRONASE [Concomitant]
     Route: 048
  7. TYLENOL W/ CODEINE [Concomitant]
     Route: 048
  8. TENORETIC 100 [Concomitant]
     Route: 048
  9. LIPITOR [Concomitant]
     Route: 048
  10. MOBIC [Concomitant]
     Indication: PAIN
  11. GLUCOPHAGE [Concomitant]

REACTIONS (5)
  - ABDOMINAL PAIN [None]
  - GASTRIC DISORDER [None]
  - PROCTALGIA [None]
  - RECTAL HAEMORRHAGE [None]
  - VAGINAL HAEMORRHAGE [None]
